FAERS Safety Report 22221455 (Version 1)
Quarter: 2023Q2

REPORT INFORMATION
  Report Type: Spontaneous
  Country: ES (occurrence: ES)
  Receive Date: 20230418
  Receipt Date: 20230418
  Transmission Date: 20230721
  Serious: Yes (Hospitalization)
  Sender: FDA-Public Use
  Company Number: None

PATIENT
  Age: 89 Year
  Sex: Female

DRUGS (7)
  1. AMOXICILLIN\CLAVULANIC ACID [Suspect]
     Active Substance: AMOXICILLIN\CLAVULANIC ACID
     Indication: Urinary tract infection
     Dosage: 1.0 COMP W/8 HOURS
     Route: 065
     Dates: start: 20221113, end: 20221114
  2. CARVEDILOL [Concomitant]
     Active Substance: CARVEDILOL
     Indication: Atrial fibrillation
     Dosage: 6.25 MG DE, CARVEDILOL NORMON 6.25 MG EFG TABLETS, 28 TABLETS
     Dates: start: 20210909
  3. NOLOTIL [Concomitant]
     Indication: Headache
     Dosage: 575.0 MG C/24 H
     Dates: start: 20220525
  4. ACETAMINOPHEN [Concomitant]
     Active Substance: ACETAMINOPHEN
     Indication: Headache
     Dosage: 650.0 MG C/8 HOURS, PARACETAMOL MYLAN 650 MG TABLETS EFG, 40 TABLETS
     Route: 065
     Dates: start: 20211211
  5. FUROSEMIDA UXA [Concomitant]
     Indication: Wound
     Dosage: 40.0 MG A-DE, FUROSEMIDE UXA 40 MG TABLETS EFG, 30 TABLETS
     Dates: start: 20220923
  6. GABAPENTIN [Concomitant]
     Active Substance: GABAPENTIN
     Indication: Headache
     Dosage: 100.0 MG CE, GABAPENTIN TEVA 100 MG HARD CAPSULES EFG, 90 CAPSULES
     Dates: start: 20211028
  7. ELIQUIS [Concomitant]
     Active Substance: APIXABAN
     Indication: Atrial fibrillation
     Dosage: 2.5 MG C/12 H,  60 TABLETS
     Route: 065
     Dates: start: 20210607

REACTIONS (3)
  - Vomiting [Recovered/Resolved]
  - Tremor [Recovered/Resolved]
  - Chills [Recovered/Resolved]

NARRATIVE: CASE EVENT DATE: 20221114
